FAERS Safety Report 22161186 (Version 1)
Quarter: 2023Q1

REPORT INFORMATION
  Report Type: Report from Study
  Country: US (occurrence: None)
  Receive Date: 20230331
  Receipt Date: 20230331
  Transmission Date: 20230417
  Serious: Yes (Other)
  Sender: FDA-Public Use
  Company Number: 2023A070943

PATIENT
  Sex: Female

DRUGS (1)
  1. TAGRISSO [Suspect]
     Active Substance: OSIMERTINIB
     Indication: Lung neoplasm malignant
     Route: 048
     Dates: start: 202212

REACTIONS (7)
  - Neuropathy peripheral [Unknown]
  - Foot fracture [Unknown]
  - Gait disturbance [Unknown]
  - Nail discolouration [Unknown]
  - Onychoclasis [Unknown]
  - Nail cuticle fissure [Unknown]
  - Cough [Recovered/Resolved]
